FAERS Safety Report 4699255-8 (Version None)
Quarter: 2005Q2

REPORT INFORMATION
  Report Type: 
  Country: None (occurrence: None)
  Receive Date: 20050622
  Receipt Date: 20050610
  Transmission Date: 20051028
  Serious: Yes (Death)
  Sender: FDA-Public Use
  Company Number: 2005080379

PATIENT
  Age: 75 Year

DRUGS (4)
  1. CELEBREX [Suspect]
     Indication: OSTEOPOROSIS
     Dosage: (200 MG , 1 IN 1D)
  2. CELEBREX [Suspect]
     Indication: PAIN
     Dosage: (200 MG , 1 IN 1D)
  3. AMIODARONE HCL [Concomitant]
  4. ALL OTHER THERAPEUTIC PRODUCTS (ALL OTHER THERAPEUTIC PRODUCTS0 [Concomitant]

REACTIONS (4)
  - BLOOD MAGNESIUM DECREASED [None]
  - HYPOCALCAEMIA [None]
  - MALAISE [None]
  - TETANY [None]
